FAERS Safety Report 16067878 (Version 1)
Quarter: 2019Q1

REPORT INFORMATION
  Report Type: Report from Study
  Country: ES (occurrence: ES)
  Receive Date: 20190313
  Receipt Date: 20190313
  Transmission Date: 20190418
  Serious: Yes (Disabling)
  Sender: FDA-Public Use
  Company Number: ES-PFIZER INC-2019108360

PATIENT
  Age: 4 Year
  Sex: Male
  Weight: 16.1 kg

DRUGS (3)
  1. METHYLPREDNISOLONE SODIUM SUCCINATE. [Suspect]
     Active Substance: METHYLPREDNISOLONE SODIUM SUCCINATE
     Indication: IMMUNOSUPPRESSION
     Dosage: 40 MG, DAILY
     Route: 042
     Dates: start: 20171113, end: 20171221
  2. ESTILSONA 7 MG/ML GOTAS ORALES EN SUSPENSI?N, 1 FRASCO DE 10 ML [Suspect]
     Active Substance: PREDNISOLONE STEAGLATE
     Indication: IMMUNOSUPPRESSION
     Dosage: 11.9 MG, 2X/DAY
     Route: 048
     Dates: start: 20171222, end: 20180329
  3. HYDROCORTISONE. [Suspect]
     Active Substance: HYDROCORTISONE
     Indication: IMMUNOSUPPRESSION
     Dosage: 5 MG, 3X/DAY
     Route: 048
     Dates: start: 20180330

REACTIONS (1)
  - Osteonecrosis [Not Recovered/Not Resolved]

NARRATIVE: CASE EVENT DATE: 20180409
